FAERS Safety Report 8716854 (Version 2)
Quarter: 2013Q1

REPORT INFORMATION
  Report Type: Spontaneous
  Country: US (occurrence: US)
  Receive Date: 20120810
  Receipt Date: 20130131
  Transmission Date: 20140127
  Serious: Yes (Hospitalization)
  Sender: FDA-Public Use
  Company Number: US-BAYER-2012-078817

PATIENT
  Age: 44 Year
  Sex: Female
  Weight: 138.32 kg

DRUGS (15)
  1. YAZ [Suspect]
     Indication: DYSMENORRHOEA
     Dosage: UNK
     Dates: start: 20060124, end: 20100127
  2. YASMIN [Suspect]
     Indication: DYSMENORRHOEA
     Dosage: UNK
     Dates: start: 20060124, end: 20100127
  3. OCELLA [Suspect]
     Dosage: UNK
     Dates: start: 20060124, end: 20100127
  4. PERCOCET [Concomitant]
     Indication: BACK PAIN
     Dosage: 325/5 TWO TABLETS Q 6 HOURS P.R.N.
  5. LIPITOR [Concomitant]
     Dosage: 10 MG, DAILY
  6. FLEXERIL [Concomitant]
     Dosage: 10 MG, HS
  7. DICYCLOMINE [Concomitant]
     Indication: IRRITABLE BOWEL SYNDROME
     Dosage: 20 MG, QID AS NEEDED
  8. LOSARTAN POTASSIUM W/HYDROCHLOROTHIAZIDE [Concomitant]
     Dosage: 100/25 ONE DAILY
  9. HYZAAR [Concomitant]
  10. MULTIVITAMIN [Concomitant]
     Dosage: UNK, DAILY
  11. PROMETHAZINE [Concomitant]
     Indication: NAUSEA
     Dosage: 25 MG, Q 6 HOURS P.R.N.
  12. VALTREX [Concomitant]
     Dosage: 1 G, BID AS NEEDED
     Route: 048
  13. LIDODERM [Concomitant]
     Indication: BACK PAIN
     Dosage: 5 MG, 5% PRN
  14. ALEVE [Concomitant]
     Indication: BACK PAIN
     Dosage: UNK, AT NIGHT
  15. ALBUTEROL [Concomitant]
     Dosage: 2 PUFF(S), QID AS NEEDED

REACTIONS (7)
  - Deep vein thrombosis [None]
  - Injury [None]
  - Pain [None]
  - Emotional distress [None]
  - General physical health deterioration [None]
  - Pain [None]
  - Anxiety [None]
